FAERS Safety Report 13817338 (Version 2)
Quarter: 2017Q3

REPORT INFORMATION
  Report Type: Report from Study
  Country: CL (occurrence: CL)
  Receive Date: 20170731
  Receipt Date: 20170829
  Transmission Date: 20171127
  Serious: No
  Sender: FDA-Public Use
  Company Number: PHHY2017CL110454

PATIENT
  Sex: Male

DRUGS (1)
  1. OMNITROPE [Suspect]
     Active Substance: SOMATROPIN
     Indication: CONGENITAL HYPOTHYROIDISM
     Dosage: 1.95 IU, UNK
     Route: 058
     Dates: start: 201603

REACTIONS (2)
  - Crying [Unknown]
  - Pain in extremity [Unknown]
